FAERS Safety Report 10276402 (Version 4)
Quarter: 2014Q3

REPORT INFORMATION
  Report Type: Spontaneous
  Country: JP (occurrence: JP)
  Receive Date: 20140703
  Receipt Date: 20140808
  Transmission Date: 20150326
  Serious: Yes (Death)
  Sender: FDA-Public Use
  Company Number: JP-ASTELLAS-2014JP011996

PATIENT
  Age: 75 Year
  Sex: Male

DRUGS (14)
  1. ZOSYN [Suspect]
     Active Substance: PIPERACILLIN SODIUM\TAZOBACTAM SODIUM
     Indication: URINARY TRACT INFECTION
     Route: 042
     Dates: start: 20140614, end: 20140616
  2. MEROPENEM. [Suspect]
     Active Substance: MEROPENEM
     Indication: URINARY TRACT INFECTION
     Route: 048
     Dates: start: 20140616, end: 20140618
  3. LAXOBERON [Concomitant]
     Active Substance: SODIUM PICOSULFATE
     Indication: PROSTATE CANCER
     Dosage: UNK UNK, AS NEEDED
     Route: 048
     Dates: start: 201312, end: 201406
  4. HERBESSER [Concomitant]
     Active Substance: DILTIAZEM HYDROCHLORIDE
     Indication: ANGINA PECTORIS
     Route: 048
     Dates: start: 201312, end: 201406
  5. MAGMITT [Concomitant]
     Active Substance: MAGNESIUM OXIDE
     Indication: PROSTATE CANCER
     Route: 048
     Dates: start: 201312, end: 201406
  6. OXINORM                            /00045603/ [Concomitant]
     Indication: PROSTATE CANCER
     Dosage: UNK UNK, AS NEEDED
     Route: 048
     Dates: start: 201312, end: 201406
  7. TRAMCET [Concomitant]
     Active Substance: ACETAMINOPHEN\TRAMADOL
     Indication: PROSTATE CANCER
     Route: 048
     Dates: start: 201312, end: 201406
  8. LOXONIN [Concomitant]
     Active Substance: LOXOPROFEN SODIUM
     Indication: PROSTATE CANCER
     Route: 048
     Dates: start: 201312, end: 201406
  9. PARIET [Concomitant]
     Active Substance: RABEPRAZOLE SODIUM
     Indication: PROSTATE CANCER
     Route: 048
     Dates: start: 201312, end: 201406
  10. EBRANTIL                           /00631801/ [Concomitant]
     Active Substance: URAPIDIL
     Indication: PROSTATE CANCER
     Route: 048
     Dates: start: 201312, end: 201406
  11. OXYCONTIN [Concomitant]
     Active Substance: OXYCODONE HYDROCHLORIDE
     Indication: PROSTATE CANCER
     Route: 048
     Dates: start: 201312, end: 201406
  12. BAYASPIRIN [Concomitant]
     Active Substance: ASPIRIN
     Indication: ANGINA PECTORIS
     Route: 048
     Dates: start: 201312, end: 201406
  13. XTANDI [Suspect]
     Active Substance: ENZALUTAMIDE
     Indication: PROSTATE CANCER
     Route: 048
     Dates: start: 20140609, end: 201406
  14. DECADRON [Concomitant]
     Active Substance: DEXAMETHASONE
     Indication: PROSTATE CANCER
     Route: 048
     Dates: start: 201312, end: 201406

REACTIONS (1)
  - Diffuse alveolar damage [Fatal]

NARRATIVE: CASE EVENT DATE: 20140617
